FAERS Safety Report 7833594-4 (Version None)
Quarter: 2011Q4

REPORT INFORMATION
  Report Type: 
  Country: None (occurrence: None)
  Receive Date: 20111024
  Receipt Date: 20111019
  Transmission Date: 20120403
  Serious: Yes (Hospitalization)
  Sender: FDA-Public Use
  Company Number: GB-BRISTOL-MYERS SQUIBB COMPANY-15152119

PATIENT
  Age: 54 Year
  Sex: Female
  Weight: 59 kg

DRUGS (7)
  1. ACETAMINOPHEN [Concomitant]
     Indication: PAIN
  2. DEXAMETHASONE [Concomitant]
  3. ALIMTA [Suspect]
     Indication: NON-SMALL CELL LUNG CANCER
     Dosage: RECENT DOSE 11FEB10
     Route: 042
     Dates: start: 20091001
  4. FOLIC ACID [Concomitant]
     Dates: start: 20090930
  5. VITAMIN B-12 [Concomitant]
     Dates: start: 20090930
  6. ENOXAPARIN SODIUM [Concomitant]
     Indication: PULMONARY EMBOLISM
     Dates: start: 20091101
  7. CISPLATIN [Suspect]
     Indication: NON-SMALL CELL LUNG CANCER
     Dosage: 118MG
     Route: 065

REACTIONS (3)
  - DECREASED APPETITE [None]
  - FATIGUE [None]
  - PRESYNCOPE [None]
